FAERS Safety Report 14555691 (Version 11)
Quarter: 2018Q4

REPORT INFORMATION
  Report Type: Spontaneous
  Country: GB (occurrence: GB)
  Receive Date: 20180220
  Receipt Date: 20181224
  Transmission Date: 20190204
  Serious: Yes (Death, Life-Threatening, Hospitalization, Other)
  Sender: FDA-Public Use
  Company Number: GB-BRISTOL-MYERS SQUIBB COMPANY-BMS-2018-014968

PATIENT
  Age: 72 Year
  Sex: Male

DRUGS (19)
  1. METHYLPREDNISOLONE. [Suspect]
     Active Substance: METHYLPREDNISOLONE
     Indication: PRODUCT USED FOR UNKNOWN INDICATION
     Dosage: 1 G, BID
     Route: 048
     Dates: start: 20180205
  2. AVELUMAB [Suspect]
     Active Substance: AVELUMAB
     Indication: HODGKIN^S DISEASE
     Dosage: 350 MG, Q2WK
     Route: 041
     Dates: start: 20161123, end: 20180117
  3. LEVOTHYROXINE. [Concomitant]
     Active Substance: LEVOTHYROXINE
     Indication: THYROID FUNCTION TEST ABNORMAL
     Dosage: 1 DF (50 MCG), QD
     Route: 048
  4. RANITIDINE. [Concomitant]
     Active Substance: RANITIDINE
     Indication: PRODUCT USED FOR UNKNOWN INDICATION
     Dosage: 150 MG, BID
     Route: 048
     Dates: start: 20180125
  5. PREDNISOLONE. [Suspect]
     Active Substance: PREDNISOLONE
     Indication: PRODUCT USED FOR UNKNOWN INDICATION
     Dosage: 90 MG, 1 DAY (FREQUENCY UNSPECIFIED)
     Route: 048
     Dates: start: 20180805
  6. CYCLIZINE [Concomitant]
     Active Substance: CYCLIZINE
     Indication: NAUSEA
     Dosage: 50 MG, TID
     Route: 048
     Dates: start: 20180127
  7. APIXABAN [Suspect]
     Active Substance: APIXABAN
     Indication: EMBOLISM VENOUS
     Route: 065
  8. METHYLPREDNISOLONE. [Suspect]
     Active Substance: METHYLPREDNISOLONE
     Indication: PNEUMONITIS
     Dosage: UNK
     Route: 065
  9. PREDNISONE. [Concomitant]
     Active Substance: PREDNISONE
     Indication: PNEUMONITIS
     Dosage: 90 MG, QD
     Route: 048
     Dates: start: 20180205
  10. SOLU-MEDRONE [Suspect]
     Active Substance: METHYLPREDNISOLONE SODIUM SUCCINATE
     Indication: PNEUMONITIS
     Dosage: 80 MG, QD
     Route: 042
     Dates: start: 20180117, end: 20180205
  11. LEVOTHYROXINE. [Concomitant]
     Active Substance: LEVOTHYROXINE
     Indication: PRODUCT USED FOR UNKNOWN INDICATION
     Dosage: 1 DF (50 MCG), QD
     Route: 048
  12. APIXABAN [Suspect]
     Active Substance: APIXABAN
     Indication: THROMBOPHLEBITIS SUPERFICIAL
     Dosage: UNK
     Route: 065
  13. CLEXANE [Suspect]
     Active Substance: ENOXAPARIN SODIUM
     Indication: THROMBOSIS
     Dosage: 150 MG, QD
     Route: 058
     Dates: start: 20180207
  14. SALBUTAMOL [Concomitant]
     Active Substance: ALBUTEROL
     Indication: DYSPNOEA
     Dosage: 5 MG, QID
     Route: 055
     Dates: start: 20180120
  15. SEPTRIN [Concomitant]
     Active Substance: SULFAMETHOXAZOLE\TRIMETHOPRIM
     Indication: PNEUMOCYSTIS JIROVECII PNEUMONIA
     Dosage: 960 UNK, QID
     Route: 042
     Dates: start: 20180129
  16. PREDNISOLONE. [Suspect]
     Active Substance: PREDNISOLONE
     Indication: PNEUMONITIS
     Dosage: 90 MG, 1 DAY (FREQUENYC UNSPECIFED)
     Route: 048
     Dates: start: 20180206, end: 20180209
  17. CARBOCYSTEINE [Concomitant]
     Active Substance: CARBOCYSTEINE
     Indication: SECRETION DISCHARGE
     Dosage: 750 MG, TID
     Route: 048
     Dates: start: 20180120
  18. POSACONAZOLE [Concomitant]
     Active Substance: POSACONAZOLE
     Indication: PROPHYLAXIS
     Dosage: 300 MG, QD
     Route: 048
     Dates: start: 20180208
  19. MYCOPHENOLATE MOFETIL. [Concomitant]
     Active Substance: MYCOPHENOLATE MOFETIL
     Indication: PNEUMONITIS
     Dosage: 1 G, BID
     Route: 048
     Dates: start: 20180205

REACTIONS (4)
  - Duodenal ulcer haemorrhage [Recovered/Resolved]
  - Pneumonitis [Fatal]
  - Respiratory disorder [Unknown]
  - Duodenal perforation [Fatal]

NARRATIVE: CASE EVENT DATE: 20180209
